FAERS Safety Report 20439362 (Version 1)
Quarter: 2022Q1

REPORT INFORMATION
  Report Type: Spontaneous
  Country: BE (occurrence: BE)
  Receive Date: 20220207
  Receipt Date: 20220207
  Transmission Date: 20220423
  Serious: Yes (Other)
  Sender: FDA-Public Use
  Company Number: BE-GLAXOSMITHKLINE-BE2022GSK016696

PATIENT
  Age: 68 Year
  Sex: Male

DRUGS (9)
  1. ACYCLOVIR [Suspect]
     Active Substance: ACYCLOVIR
     Indication: Herpes ophthalmic
     Dosage: 400 MG 5 TIMES A DAY
  2. VALACYCLOVIR HYDROCHLORIDE [Suspect]
     Active Substance: VALACYCLOVIR HYDROCHLORIDE
     Indication: Herpes ophthalmic
     Dosage: 500 MG, TID
  3. AZATHIOPRINE [Suspect]
     Active Substance: AZATHIOPRINE
     Indication: Myasthenia gravis
     Dosage: 100 MG
  4. METHYLPREDNISOLONE [Suspect]
     Active Substance: METHYLPREDNISOLONE
     Indication: Myasthenia gravis
     Dosage: 64 MG, 1D
  5. METHYLPREDNISOLONE [Suspect]
     Active Substance: METHYLPREDNISOLONE
     Dosage: 16 MG
  6. GANCICLOVIR [Suspect]
     Active Substance: GANCICLOVIR
     Indication: Herpes ophthalmic
     Dosage: 8 TIMES A DAY
  7. GANCICLOVIR [Suspect]
     Active Substance: GANCICLOVIR
     Dosage: 5 TIMES A DAY
     Route: 061
  8. BRIVUDINE [Suspect]
     Active Substance: BRIVUDINE
     Indication: Herpes ophthalmic
     Dosage: 5 TIMES A DAY
     Route: 061
  9. BRIVUDINE [Suspect]
     Active Substance: BRIVUDINE
     Dosage: 8 TIMES A DAY
     Route: 061

REACTIONS (5)
  - Drug resistance [Unknown]
  - Herpes ophthalmic [Recovered/Resolved]
  - Viral mutation identified [Unknown]
  - Drug ineffective [Unknown]
  - Wrong technique in product usage process [Unknown]
